FAERS Safety Report 16677458 (Version 2)
Quarter: 2019Q3

REPORT INFORMATION
  Report Type: Spontaneous
  Country: FR (occurrence: FR)
  Receive Date: 20190807
  Receipt Date: 20190808
  Transmission Date: 20191004
  Serious: Yes (Life-Threatening, Other)
  Sender: FDA-Public Use
  Company Number: FR-PFIZER INC-2019331677

PATIENT
  Age: 61 Year
  Sex: Male
  Weight: 67 kg

DRUGS (6)
  1. CIFLOX [CIPROFLOXACIN HYDROCHLORIDE] [Suspect]
     Active Substance: CIPROFLOXACIN HYDROCHLORIDE
     Indication: ANTIBIOTIC THERAPY
     Dosage: 400 MG, 1X/DAY
     Route: 041
     Dates: start: 20190422, end: 20190502
  2. CIFLOX [CIPROFLOXACIN HYDROCHLORIDE] [Suspect]
     Active Substance: CIPROFLOXACIN HYDROCHLORIDE
     Indication: ANTIBIOTIC THERAPY
     Dosage: 1000 MG, 1X/DAY
     Route: 048
     Dates: start: 20190502, end: 20190516
  3. CARBOPLATIN. [Suspect]
     Active Substance: CARBOPLATIN
     Indication: BRONCHIAL CARCINOMA
     Dosage: 240 MG, WEEKLY
     Route: 041
     Dates: start: 20190506, end: 20190513
  4. ROCEPHINE [Suspect]
     Active Substance: CEFTRIAXONE SODIUM
     Indication: ANTIBIOTIC THERAPY
     Dosage: UNK (NOT REPORTED)
     Route: 041
     Dates: start: 20190419, end: 20190422
  5. PACLITAXEL. [Suspect]
     Active Substance: PACLITAXEL
     Indication: BRONCHIAL CARCINOMA
     Dosage: 240 MG, WEEKLY
     Route: 041
     Dates: start: 20190506, end: 20190513
  6. PYOSTACINE [Suspect]
     Active Substance: PRISTINAMYCIN
     Indication: DERMO-HYPODERMITIS
     Dosage: 1 G, 1X/DAY
     Route: 048
     Dates: start: 20190506, end: 20190507

REACTIONS (2)
  - Rash erythematous [Recovering/Resolving]
  - Toxic epidermal necrolysis [Recovering/Resolving]

NARRATIVE: CASE EVENT DATE: 20190507
